FAERS Safety Report 9441613 (Version 1)
Quarter: 2013Q3

REPORT INFORMATION
  Report Type: Spontaneous
  Country: GB (occurrence: GB)
  Receive Date: 20130806
  Receipt Date: 20130806
  Transmission Date: 20140515
  Serious: Yes (Death, Life-Threatening, Hospitalization, Other)
  Sender: FDA-Public Use
  Company Number: GB-JNJFOC-20130718095

PATIENT
  Sex: 0

DRUGS (2)
  1. ACETAMINOPHEN [Suspect]
     Route: 065
  2. ACETAMINOPHEN [Suspect]
     Indication: PRODUCT USED FOR UNKNOWN INDICATION
     Route: 065

REACTIONS (6)
  - Troponin I increased [Not Recovered/Not Resolved]
  - Liver transplant [Unknown]
  - Hypotension [Unknown]
  - Multi-organ failure [Fatal]
  - Hepatotoxicity [Not Recovered/Not Resolved]
  - Overdose [Not Recovered/Not Resolved]
